FAERS Safety Report 5585516-7 (Version None)
Quarter: 2008Q1

REPORT INFORMATION
  Report Type: 
  Country: None (occurrence: None)
  Receive Date: 20080109
  Receipt Date: 20080102
  Transmission Date: 20080703
  Serious: Yes (Other)
  Sender: FDA-Public Use
  Company Number: A0701043A

PATIENT
  Age: 73 Year
  Sex: Male
  Weight: 77.7 kg

DRUGS (4)
  1. VALTREX [Suspect]
     Indication: HERPES ZOSTER
     Dosage: 1000MG THREE TIMES PER DAY
     Route: 048
     Dates: start: 20071115, end: 20071124
  2. MICARDIS HCT [Concomitant]
     Dosage: 1TAB PER DAY
     Route: 048
     Dates: start: 20050627
  3. CODEINE [Concomitant]
     Dates: start: 20071115
  4. IMOVANE [Concomitant]
     Indication: INSOMNIA
     Dosage: 7.5MG AT NIGHT
     Route: 048
     Dates: start: 19970101

REACTIONS (2)
  - DISCOMFORT [None]
  - DYSKINESIA [None]
